FAERS Safety Report 7853173-2 (Version None)
Quarter: 2011Q4

REPORT INFORMATION
  Report Type: 
  Country: None (occurrence: None)
  Receive Date: 20111026
  Receipt Date: 20111018
  Transmission Date: 20120403
  Serious: Yes (Death)
  Sender: FDA-Public Use
  Company Number: PE-MERCK-1110PER00004

PATIENT
  Age: 2 Month
  Sex: Male

DRUGS (3)
  1. CANCIDAS [Suspect]
     Route: 051
     Dates: start: 20111009, end: 20111010
  2. CANCIDAS [Suspect]
     Indication: FUNGAL INFECTION
     Route: 051
     Dates: start: 20111012, end: 20111012
  3. AMPHOTERICIN B [Concomitant]
     Indication: FUNGAL INFECTION
     Route: 065
     Dates: start: 20110901, end: 20110901

REACTIONS (4)
  - RESPIRATORY RATE DECREASED [None]
  - OFF LABEL USE [None]
  - RESPIRATORY ARREST [None]
  - DEATH [None]
